FAERS Safety Report 4913129-6 (Version None)
Quarter: 2006Q1

REPORT INFORMATION
  Report Type: 
  Country: None (occurrence: None)
  Receive Date: 20060210
  Receipt Date: 20060127
  Transmission Date: 20060701
  Serious: Yes (Hospitalization)
  Sender: FDA-Public Use
  Company Number: PHBS2006SG01665

PATIENT
  Age: 70 Year
  Sex: Female

DRUGS (4)
  1. DICLOFENAC SODIUM [Suspect]
  2. PARACETAMOL (NGX) (PARACETAMOL) UNKNOWN [Suspect]
  3. AUGMENITIN (AMOXICILLIN, CLAVULANATE POTASSIUM) [Suspect]
  4. CHINESE MEDICINE [Suspect]

REACTIONS (4)
  - DYSAESTHESIA [None]
  - PIGMENTATION DISORDER [None]
  - SEPSIS [None]
  - TOXIC EPIDERMAL NECROLYSIS [None]
